FAERS Safety Report 7918512-2 (Version None)
Quarter: 2011Q4

REPORT INFORMATION
  Report Type: 
  Country: None (occurrence: None)
  Receive Date: 20111116
  Receipt Date: 20111006
  Transmission Date: 20120403
  Serious: No
  Sender: FDA-Public Use
  Company Number: US-COVIDIEN/TYCO HEALTHCARE/MALLINCKRODT-T201102311

PATIENT
  Age: 71 Year
  Sex: Male
  Weight: 88.435 kg

DRUGS (3)
  1. SIMVASTATIN [Concomitant]
     Indication: BLOOD CHOLESTEROL INCREASED
     Dosage: 20 MG HS
     Route: 048
  2. FENTANYL-100 [Suspect]
     Indication: BACK PAIN
     Dosage: 25 UG/HR Q 3 DAYS
     Route: 062
     Dates: start: 20111001, end: 20111003
  3. PERCOCET [Concomitant]
     Indication: BREAKTHROUGH PAIN
     Dosage: 10/325 MG Q 4-6 HRS PRN
     Route: 048
     Dates: start: 20110301

REACTIONS (5)
  - PALPITATIONS [None]
  - HYPERHIDROSIS [None]
  - NAUSEA [None]
  - HEADACHE [None]
  - VOMITING [None]
